FAERS Safety Report 11220328 (Version 1)
Quarter: 2015Q2

REPORT INFORMATION
  Report Type: Spontaneous
  Country: US (occurrence: None)
  Receive Date: 20150625
  Receipt Date: 20150625
  Transmission Date: 20150821
  Serious: Yes (Hospitalization)
  Sender: FDA-Public Use
  Company Number: None

PATIENT
  Age: 32 Year
  Sex: Female
  Weight: 77.11 kg

DRUGS (4)
  1. CONTRAVE [Suspect]
     Active Substance: BUPROPION HYDROCHLORIDE\NALTREXONE HYDROCHLORIDE
     Indication: WEIGHT DECREASED
     Dosage: 1 TABLET BID ORAL
     Route: 048
     Dates: start: 20150623, end: 20150624
  2. OXYCODONE [Concomitant]
     Active Substance: OXYCODONE
  3. SOMA [Concomitant]
     Active Substance: CARISOPRODOL
  4. GABAPENTIN. [Concomitant]
     Active Substance: GABAPENTIN

REACTIONS (2)
  - Dysstasia [None]
  - Dizziness [None]

NARRATIVE: CASE EVENT DATE: 20150623
